FAERS Safety Report 7638211-4 (Version None)
Quarter: 2011Q3

REPORT INFORMATION
  Report Type: 
  Country: None (occurrence: None)
  Receive Date: 20110720
  Receipt Date: 20110708
  Transmission Date: 20111222
  Serious: Yes (Other)
  Sender: FDA-Public Use
  Company Number: DSJ-2011-14037

PATIENT
  Age: 74 Year
  Sex: Male

DRUGS (3)
  1. CALBLOCK (AZELNIDIPINE) (TABLET) (AZELNIDIPINE) [Concomitant]
  2. ALLORIN (ALLOPURINOL) (ALLOPURINOL) [Concomitant]
  3. OLMESARTAN MEDOXOMIL [Suspect]
     Indication: PRODUCT USED FOR UNKNOWN INDICATION
     Dates: end: 20110617

REACTIONS (3)
  - MUSCLE SPASMS [None]
  - HYPONATRAEMIA [None]
  - INSOMNIA [None]
